FAERS Safety Report 24764117 (Version 2)
Quarter: 2025Q3

REPORT INFORMATION
  Report Type: Report from Study
  Country: US (occurrence: US)
  Receive Date: 20241223
  Receipt Date: 20250810
  Transmission Date: 20251020
  Serious: Yes (Other)
  Sender: ALEXION PHARMACEUTICALS
  Company Number: US-AstraZeneca-CH-00769073A

PATIENT
  Sex: Female

DRUGS (1)
  1. CAPIVASERTIB [Suspect]
     Active Substance: CAPIVASERTIB
     Indication: Breast cancer female
     Dosage: 200 MILLIGRAM, BID
     Dates: start: 202409

REACTIONS (6)
  - Rib fracture [Unknown]
  - Urticaria [Unknown]
  - Rash [Unknown]
  - Fibula fracture [Unknown]
  - Weight decreased [Unknown]
  - Diarrhoea [Unknown]
